FAERS Safety Report 10102005 (Version 1)
Quarter: 2014Q2

REPORT INFORMATION
  Report Type: Spontaneous
  Country: BR (occurrence: BR)
  Receive Date: 20140424
  Receipt Date: 20140424
  Transmission Date: 20141212
  Serious: Yes (Other)
  Sender: FDA-Public Use
  Company Number: BR-ASTRAZENECA-2014SE26745

PATIENT
  Age: 871 Month
  Sex: Female
  Weight: 69 kg

DRUGS (6)
  1. ANGIPRESS CD (ATENOLOL + CHLORTHALIDONE) [Suspect]
     Indication: HYPERTENSION
     Dosage: DAILY
     Route: 048
     Dates: start: 2004, end: 20140404
  2. SELOZOK [Suspect]
     Indication: ARRHYTHMIA
     Route: 048
     Dates: start: 20140405
  3. SELOZOK [Suspect]
     Indication: HYPERTENSION
     Route: 048
     Dates: start: 20140405
  4. CHLORTHALIDONE [Suspect]
     Indication: HYPERTENSION
     Route: 048
     Dates: start: 201404
  5. SYNTHROID [Concomitant]
     Indication: HYPOTHYROIDISM
     Route: 048
  6. FRONTAL [Concomitant]
     Indication: SEDATIVE THERAPY
     Route: 048
     Dates: start: 1990

REACTIONS (3)
  - Arrhythmia [Recovered/Resolved]
  - Blood pressure inadequately controlled [Not Recovered/Not Resolved]
  - Drug ineffective [Unknown]
